FAERS Safety Report 7586344-3 (Version None)
Quarter: 2011Q3

REPORT INFORMATION
  Report Type: 
  Country: None (occurrence: None)
  Receive Date: 20110701
  Receipt Date: 20110622
  Transmission Date: 20111222
  Serious: Yes (Other)
  Sender: FDA-Public Use
  Company Number: ES-ABBOTT-11P-144-0731152-00

PATIENT
  Age: 27 Year
  Sex: Female
  Weight: 56 kg

DRUGS (1)
  1. HUMIRA [Suspect]
     Indication: CROHN'S DISEASE
     Dosage: 160 MG ONCE (BASELINE), THEN 80 MG WEEK 2 THEN 40 MG EVERY OTHER WEEK
     Route: 058
     Dates: start: 20090803, end: 20110201

REACTIONS (1)
  - ABORTION SPONTANEOUS [None]
